FAERS Safety Report 10076415 (Version 2)
Quarter: 2014Q2

REPORT INFORMATION
  Report Type: Report from Study
  Country: US (occurrence: US)
  Receive Date: 20140414
  Receipt Date: 20140414
  Transmission Date: 20141212
  Serious: Yes (Hospitalization, Other)
  Sender: FDA-Public Use
  Company Number: US-MILLENNIUM PHARMACEUTICALS, INC.-2013MPI000400

PATIENT
  Sex: Female
  Weight: 25 kg

DRUGS (5)
  1. VELCADE [Suspect]
     Indication: ACUTE MYELOID LEUKAEMIA
     Dosage: 1.3 UNK, VIA IV BOLUS OVER 3-5 SECONDS ON DAYS 1, 4 AND 8
     Route: 040
     Dates: start: 20130915, end: 20130915
  2. CYTARABINE [Suspect]
     Indication: ACUTE MYELOID LEUKAEMIA
     Dosage: 100 MG/M2, BID, OVER 15-30 MINUTES ON DAYS 1-10
     Route: 042
     Dates: start: 20130915, end: 20130915
  3. CYTARABINE [Suspect]
     Dosage: 100 MG/M2, BID, OVER 15-30 MINUTES ON DAYS 1-10
     Route: 037
     Dates: start: 20130915
  4. DAUNORUBICIN HYDROCHLORIDE [Suspect]
     Indication: ACUTE MYELOID LEUKAEMIA
     Dosage: 50 MG/M2, IV OVER 1-15 MINUTES ON DAYS 1, 3 AND 5
     Route: 042
     Dates: start: 20130915
  5. ETOPOSIDE [Suspect]
     Indication: ACUTE MYELOID LEUKAEMIA
     Dosage: 100 MG/M2, IV, OVER 60-120 MINUTES ON DAYS 1-5
     Route: 042
     Dates: start: 20130915

REACTIONS (4)
  - Anaphylactic reaction [Recovered/Resolved]
  - Bronchospasm [Recovered/Resolved]
  - Colitis [Recovering/Resolving]
  - Large intestine perforation [Recovering/Resolving]
